FAERS Safety Report 5095321-6 (Version None)
Quarter: 2006Q3

REPORT INFORMATION
  Report Type: 
  Country: None (occurrence: None)
  Receive Date: 20060901
  Receipt Date: 20060822
  Transmission Date: 20061208
  Serious: Yes (Hospitalization)
  Sender: FDA-Public Use
  Company Number: US-KINGPHARMUSA00001-K200601081

PATIENT
  Age: 59 Year
  Sex: Male
  Weight: 142 kg

DRUGS (7)
  1. SEPTRA [Suspect]
     Dosage: 160/800, TIW
     Route: 048
     Dates: start: 20030602
  2. BLINDED TRIAL MEDICATION [Suspect]
     Indication: HIV INFECTION
     Dosage: UNK, BID
     Route: 048
     Dates: start: 20060327
  3. TRIZIVIR [Suspect]
     Dosage: UNK, BID
     Route: 048
     Dates: start: 20050310
  4. DELAVIRDINE MESYLATE [Suspect]
     Dosage: 400 MG, TID
     Route: 048
     Dates: start: 20060323
  5. RITONAVIR [Concomitant]
  6. SAQUINAVIR [Concomitant]
     Dates: start: 20060619
  7. AZITHROMYCIN [Concomitant]
     Dates: start: 20060304

REACTIONS (12)
  - CHILLS [None]
  - DEHYDRATION [None]
  - DIZZINESS [None]
  - DIZZINESS POSTURAL [None]
  - FALL [None]
  - FATIGUE [None]
  - FEELING ABNORMAL [None]
  - GAIT DISTURBANCE [None]
  - LOSS OF CONSCIOUSNESS [None]
  - ORTHOSTATIC HYPOTENSION [None]
  - PYREXIA [None]
  - SYNCOPE [None]
